FAERS Safety Report 9601761 (Version 1)
Quarter: 2013Q4

REPORT INFORMATION
  Report Type: Spontaneous
  Country: US (occurrence: None)
  Receive Date: 20131004
  Receipt Date: 20131004
  Transmission Date: 20140711
  Serious: Yes (Disabling)
  Sender: FDA-Public Use
  Company Number: None

PATIENT
  Age: 65 Year
  Sex: Female
  Weight: 68.04 kg

DRUGS (1)
  1. BONIVA [Suspect]
     Indication: PROPHYLAXIS
     Dosage: 1 PILL
     Route: 048

REACTIONS (2)
  - Femur fracture [None]
  - Pathological fracture [None]
